FAERS Safety Report 17435059 (Version 1)
Quarter: 2020Q1

REPORT INFORMATION
  Report Type: Spontaneous
  Country: ES (occurrence: ES)
  Receive Date: 20200219
  Receipt Date: 20200219
  Transmission Date: 20200409
  Serious: Yes (Other)
  Sender: FDA-Public Use
  Company Number: ES-ALLERGAN-2007134US

PATIENT
  Sex: Female

DRUGS (1)
  1. ESCITALOPRAM OXALATE - BP [Suspect]
     Active Substance: ESCITALOPRAM OXALATE
     Indication: AFFECTIVE DISORDER
     Route: 065

REACTIONS (4)
  - Product use in unapproved indication [Unknown]
  - Diarrhoea [Recovered/Resolved]
  - Colitis microscopic [Recovered/Resolved]
  - Lymphocytosis [Recovered/Resolved]
